FAERS Safety Report 5487560-7 (Version None)
Quarter: 2007Q4

REPORT INFORMATION
  Report Type: 
  Country: None (occurrence: None)
  Receive Date: 20071015
  Receipt Date: 20071004
  Transmission Date: 20080405
  Serious: Yes (Hospitalization)
  Sender: FDA-Public Use
  Company Number: 2007AL004246

PATIENT
  Age: 51 Year
  Sex: Male

DRUGS (2)
  1. DICLOFENAC SODIUM [Suspect]
  2. VARENICLINE TARTRATE [Concomitant]

REACTIONS (3)
  - CHEST PAIN [None]
  - DRUG INTERACTION [None]
  - NAUSEA [None]
